FAERS Safety Report 25629676 (Version 2)
Quarter: 2025Q3

REPORT INFORMATION
  Report Type: Spontaneous
  Country: EU (occurrence: EU)
  Receive Date: 20250731
  Receipt Date: 20250807
  Transmission Date: 20251021
  Serious: Yes (Other)
  Sender: NOVARTIS
  Company Number: EU-002147023-NVSC2025FR048150

PATIENT
  Sex: Male

DRUGS (1)
  1. BEOVU [Suspect]
     Active Substance: BROLUCIZUMAB-DBLL
     Indication: Age-related macular degeneration
     Route: 031

REACTIONS (8)
  - Retinal vascular occlusion [Recovered/Resolved with Sequelae]
  - Visual acuity reduced [Recovered/Resolved with Sequelae]
  - Uveitis [Unknown]
  - Macular oedema [Recovered/Resolved with Sequelae]
  - Anterior chamber flare [Unknown]
  - Fundoscopy abnormal [Unknown]
  - Eye inflammation [Unknown]
  - Epiretinal membrane [Recovered/Resolved with Sequelae]

NARRATIVE: CASE EVENT DATE: 20250110
